FAERS Safety Report 4841482-0 (Version None)
Quarter: 2005Q4

REPORT INFORMATION
  Report Type: 
  Country: None (occurrence: None)
  Receive Date: 20051130
  Receipt Date: 20050804
  Transmission Date: 20060501
  Serious: No
  Sender: FDA-Public Use
  Company Number: US-GLAXOSMITHKLINE-A0568947A

PATIENT
  Age: 35 Year
  Sex: Female

DRUGS (3)
  1. WELLBUTRIN XL [Suspect]
     Indication: DEPRESSION
     Dosage: 300MG PER DAY
     Route: 048
     Dates: start: 20050518
  2. NO CONCURRENT MEDICATION [Concomitant]
  3. LOTION [Concomitant]

REACTIONS (3)
  - CONSTIPATION [None]
  - PRURITUS [None]
  - RASH [None]
